FAERS Safety Report 11781819 (Version 3)
Quarter: 2016Q4

REPORT INFORMATION
  Report Type: Report from Study
  Country: JP (occurrence: JP)
  Receive Date: 20151126
  Receipt Date: 20161222
  Transmission Date: 20170206
  Serious: No
  Sender: FDA-Public Use
  Company Number: JP-AMGEN-JPNNI2015125653

PATIENT
  Age: 78 Year
  Sex: Female
  Weight: 62 kg

DRUGS (7)
  1. DENOTAS [Concomitant]
     Active Substance: CALCIUM CARBONATE\CHOLECALCIFEROL\MAGNESIUM CARBONATE
     Dosage: 2 DF, QD
     Route: 048
     Dates: start: 20130906
  2. OPALMON [Concomitant]
     Active Substance: LIMAPROST
     Dosage: 5 MUG, QD
     Route: 048
  3. DENOSUMAB [Suspect]
     Active Substance: DENOSUMAB
     Indication: OSTEOPOROSIS
     Dosage: 60 MG, UNK
     Route: 058
     Dates: start: 20130905
  4. FERROMIA [Concomitant]
     Active Substance: FERROUS CITRATE
     Dosage: 50 MG, QD
     Route: 048
  5. DENOSUMAB [Suspect]
     Active Substance: DENOSUMAB
     Dosage: 60 MG
     Route: 058
     Dates: start: 20150402
  6. DENOSUMAB [Suspect]
     Active Substance: DENOSUMAB
     Dosage: 60 MG
     Route: 058
     Dates: start: 20151015
  7. DENOSUMAB [Suspect]
     Active Substance: DENOSUMAB
     Dosage: 60 MG
     Route: 058
     Dates: start: 20160509

REACTIONS (1)
  - Swelling [Recovering/Resolving]

NARRATIVE: CASE EVENT DATE: 20151111
